FAERS Safety Report 24796000 (Version 2)
Quarter: 2025Q1

REPORT INFORMATION
  Report Type: Spontaneous
  Country: US (occurrence: US)
  Receive Date: 20250101
  Receipt Date: 20250107
  Transmission Date: 20250409
  Serious: Yes (Death, Life-Threatening, Other)
  Sender: SANOFI AVENTIS
  Company Number: US-DialogSolutions-SAAVPROD-PI724636-C1

PATIENT
  Age: 70 Year
  Sex: Male

DRUGS (3)
  1. THYMOGLOBULIN [Suspect]
     Active Substance: LAPINE T-LYMPHOCYTE IMMUNE GLOBULIN
     Indication: End stage renal disease
  2. METHYLPREDNISOLONE [Suspect]
     Active Substance: METHYLPREDNISOLONE
     Indication: End stage renal disease
  3. MYFORTIC [Suspect]
     Active Substance: MYCOPHENOLATE SODIUM
     Indication: End stage renal disease

REACTIONS (14)
  - Oesophagitis [Fatal]
  - Abdominal pain [Fatal]
  - Haematemesis [Fatal]
  - Oesophageal ulcer [Fatal]
  - Gastrointestinal disorder [Fatal]
  - Gastritis [Fatal]
  - Duodenitis [Fatal]
  - Gastrointestinal haemorrhage [Fatal]
  - Atrial fibrillation [Fatal]
  - Septic shock [Fatal]
  - Bronchopulmonary aspergillosis [Fatal]
  - Strongyloidiasis [Fatal]
  - Staphylococcal infection [Fatal]
  - Pathogen resistance [Fatal]
